FAERS Safety Report 11936864 (Version 1)
Quarter: 2016Q1

REPORT INFORMATION
  Report Type: Spontaneous
  Country: US (occurrence: US)
  Receive Date: 20160121
  Receipt Date: 20160121
  Transmission Date: 20160526
  Serious: No
  Sender: FDA-Public Use
  Company Number: US-TARO-2015TAR00254

PATIENT
  Age: 87 Year
  Sex: Female
  Weight: 63.49 kg

DRUGS (3)
  1. NYSTATIN AND TRIAMCINOLONE ACETONIDE [Suspect]
     Active Substance: NYSTATIN\TRIAMCINOLONE ACETONIDE
     Indication: VULVOVAGINAL DISCOMFORT
     Dosage: UNK UNK, 1X/DAY
     Route: 061
     Dates: start: 20150317, end: 20150322
  2. METOPROLOL. [Concomitant]
     Active Substance: METOPROLOL
  3. ^TRIAM^ [Concomitant]

REACTIONS (3)
  - Drug ineffective [Not Recovered/Not Resolved]
  - Inappropriate schedule of drug administration [Not Recovered/Not Resolved]
  - Application site pain [Not Recovered/Not Resolved]

NARRATIVE: CASE EVENT DATE: 20150317
